FAERS Safety Report 7978091-0 (Version None)
Quarter: 2011Q4

REPORT INFORMATION
  Report Type: 
  Country: None (occurrence: None)
  Receive Date: 20111212
  Receipt Date: 20111212
  Transmission Date: 20120403
  Serious: Yes (Hospitalization)
  Sender: FDA-Public Use
  Company Number: None

PATIENT
  Sex: Female

DRUGS (3)
  1. PEGASYS [Suspect]
     Dosage: 180MCG WEEKLY SQ
     Route: 058
     Dates: start: 20111114, end: 20111202
  2. RIBAVIRIN [Suspect]
     Dosage: 800MG DAILY PO
     Route: 048
  3. INCIVEK [Concomitant]

REACTIONS (5)
  - MUSCLE SPASMS [None]
  - DEHYDRATION [None]
  - NAUSEA [None]
  - VOMITING [None]
  - DIARRHOEA [None]
